FAERS Safety Report 7712470-1 (Version None)
Quarter: 2011Q3

REPORT INFORMATION
  Report Type: 
  Country: None (occurrence: None)
  Receive Date: 20110826
  Receipt Date: 20110826
  Transmission Date: 20111222
  Serious: Yes (Other)
  Sender: FDA-Public Use
  Company Number: None

PATIENT
  Sex: Female
  Weight: 117.93 kg

DRUGS (1)
  1. PRADAXA [Suspect]
     Indication: ATRIAL FIBRILLATION
     Dosage: 1 CAPSULE TWICE A DAY
     Route: 048
     Dates: start: 20110501, end: 20110815

REACTIONS (7)
  - ALOPECIA [None]
  - MUSCULOSKELETAL DISCOMFORT [None]
  - PAIN [None]
  - ASTHENIA [None]
  - DRY SKIN [None]
  - ABDOMINAL PAIN UPPER [None]
  - DIARRHOEA [None]
